FAERS Safety Report 13753189 (Version 2)
Quarter: 2017Q3

REPORT INFORMATION
  Report Type: Report from Study
  Country: US (occurrence: US)
  Receive Date: 20170714
  Receipt Date: 20170727
  Transmission Date: 20171127
  Serious: Yes (Hospitalization, Other)
  Sender: FDA-Public Use
  Company Number: US-TAIHO ONCOLOGY INC-EU-2017-00982

PATIENT
  Age: 74 Year
  Sex: Female
  Weight: 59.02 kg

DRUGS (12)
  1. LONSURF [Suspect]
     Active Substance: TIPIRACIL HYDROCHLORIDE\TRIFLURIDINE
     Indication: COLON CANCER
     Dosage: CYCLE 2 STARTED 12JUN2017
     Route: 048
     Dates: start: 20170519
  2. COLECALCIFEROL/CALCIUM [Concomitant]
     Dosage: NI
  3. RESTASIS [Concomitant]
     Active Substance: CYCLOSPORINE
  4. NORTRIPTYLINE [Concomitant]
     Active Substance: NORTRIPTYLINE
     Dosage: NI
  5. LORAZEPAM. [Concomitant]
     Active Substance: LORAZEPAM
     Dosage: NI
  6. HYOSCINE [Concomitant]
     Active Substance: SCOPOLAMINE
     Route: 062
  7. AMBIEN [Concomitant]
     Active Substance: ZOLPIDEM TARTRATE
     Dosage: NI
  8. LATANOPROST. [Concomitant]
     Active Substance: LATANOPROST
  9. LEVOTHYROXINE. [Concomitant]
     Active Substance: LEVOTHYROXINE
  10. LONSURF [Suspect]
     Active Substance: TIPIRACIL HYDROCHLORIDE\TRIFLURIDINE
     Indication: COLON CANCER
     Dosage: CYCLE 1
     Route: 048
     Dates: start: 20170515, end: 20170519
  11. REGLAN [Concomitant]
     Active Substance: METOCLOPRAMIDE HYDROCHLORIDE
     Dosage: NI
  12. IBUPROFEN. [Concomitant]
     Active Substance: IBUPROFEN

REACTIONS (10)
  - Haematocrit decreased [Recovering/Resolving]
  - Abdominal pain [Recovering/Resolving]
  - Heart rate increased [Recovering/Resolving]
  - Diarrhoea [Recovering/Resolving]
  - Fatigue [Recovering/Resolving]
  - Dehydration [Recovering/Resolving]
  - Feeding disorder [Recovering/Resolving]
  - Vomiting [Recovering/Resolving]
  - Nausea [Recovering/Resolving]
  - Somnolence [Recovering/Resolving]

NARRATIVE: CASE EVENT DATE: 201705
